FAERS Safety Report 20310375 (Version 1)
Quarter: 2022Q1

REPORT INFORMATION
  Report Type: Spontaneous
  Country: FR (occurrence: FR)
  Receive Date: 20220107
  Receipt Date: 20220107
  Transmission Date: 20220423
  Serious: Yes (Hospitalization)
  Sender: FDA-Public Use
  Company Number: None

PATIENT
  Age: 23 Year
  Sex: Male

DRUGS (7)
  1. CLONAZEPAM [Suspect]
     Active Substance: CLONAZEPAM
     Dosage: DOSE NOT SPECIFIED
     Route: 048
  2. DIAZEPAM [Suspect]
     Active Substance: DIAZEPAM
     Dosage: DOSE NOT SPECIFIED
     Route: 048
  3. PREGABALIN [Suspect]
     Active Substance: PREGABALIN
     Dosage: 4 TABLETS DECLARED
     Route: 048
     Dates: start: 20211125, end: 20211125
  4. CANNABIS SATIVA SUBSP. INDICA TOP [Suspect]
     Active Substance: CANNABIS SATIVA SUBSP. INDICA TOP
     Dosage: SEVERAL JOINTS / DAY
     Route: 055
  5. COCAINE [Suspect]
     Active Substance: COCAINE
     Dosage: 1G DECLARED
     Route: 065
     Dates: start: 20211102, end: 20211102
  6. PRAZEPAM [Suspect]
     Active Substance: PRAZEPAM
     Dosage: 20 CP DECLARED
     Route: 048
     Dates: start: 20211119, end: 20211119
  7. TRIMEPRAZINE [Concomitant]
     Active Substance: TRIMEPRAZINE
     Dosage: DOSE NOT SPECIFIED
     Route: 048

REACTIONS (2)
  - Intentional product misuse [Unknown]
  - Poisoning deliberate [Unknown]
